FAERS Safety Report 11593214 (Version 2)
Quarter: 2015Q4

REPORT INFORMATION
  Report Type: Spontaneous
  Country: JP (occurrence: JP)
  Receive Date: 20151005
  Receipt Date: 20151026
  Transmission Date: 20160304
  Serious: Yes (Other)
  Sender: FDA-Public Use
  Company Number: PHJP2015JP016716

PATIENT
  Age: 73 Year
  Sex: Male

DRUGS (1)
  1. NEORAL [Suspect]
     Active Substance: CYCLOSPORINE
     Indication: COLLAGEN DISORDER
     Dosage: UNK
     Route: 048

REACTIONS (2)
  - Off label use [Unknown]
  - Interstitial lung disease [Unknown]
